FAERS Safety Report 8132705-3 (Version None)
Quarter: 2012Q1

REPORT INFORMATION
  Report Type: 
  Country: None (occurrence: None)
  Receive Date: 20120103
  Receipt Date: 20111115
  Transmission Date: 20120608
  Serious: No
  Sender: FDA-Public Use
  Company Number: AE-2011-003487

PATIENT
  Age: 46 Year
  Sex: Male
  Weight: 80.7403 kg

DRUGS (7)
  1. INCIVEK [Suspect]
     Dosage: 2250 MG (750 MG,1 IN 8 HR),ORAL
     Route: 048
     Dates: start: 20111112
  2. LOSARTAN POTASSIUM [Concomitant]
  3. KETOCONAZOLE [Concomitant]
  4. CLINDAMYCIN [Concomitant]
  5. TAZORAC [Concomitant]
  6. RIBAVIRIN [Concomitant]
  7. PEGINTERFERON (PEGINTERFERON ALFA-2A) [Concomitant]

REACTIONS (2)
  - ANORECTAL DISCOMFORT [None]
  - RECTAL HAEMORRHAGE [None]
